FAERS Safety Report 14251836 (Version 2)
Quarter: 2017Q4

REPORT INFORMATION
  Report Type: Report from Study
  Country: US (occurrence: US)
  Receive Date: 20171205
  Receipt Date: 20171228
  Transmission Date: 20180321
  Serious: Yes (Hospitalization)
  Sender: FDA-Public Use
  Company Number: US-JNJFOC-20171204237

PATIENT
  Age: 58 Year
  Sex: Male

DRUGS (11)
  1. CELEXA [Concomitant]
     Active Substance: CITALOPRAM HYDROBROMIDE
  2. FOLIC ACID. [Concomitant]
     Active Substance: FOLIC ACID
  3. ALLOPURINOL. [Concomitant]
     Active Substance: ALLOPURINOL
  4. MORPHINE [Concomitant]
     Active Substance: MORPHINE
  5. VALACYCLOVIR [Concomitant]
     Active Substance: VALACYCLOVIR HYDROCHLORIDE
  6. IMBRUVICA [Suspect]
     Active Substance: IBRUTINIB
     Indication: CHRONIC LYMPHOCYTIC LEUKAEMIA
     Route: 048
     Dates: start: 201608, end: 201711
  7. WARFARIN [Suspect]
     Active Substance: WARFARIN
     Indication: PRODUCT USED FOR UNKNOWN INDICATION
     Route: 065
  8. SULFAMETHOXAZOLE [Concomitant]
     Active Substance: SULFAMETHOXAZOLE
  9. KEPPRA [Concomitant]
     Active Substance: LEVETIRACETAM
  10. IMBRUVICA [Suspect]
     Active Substance: IBRUTINIB
     Indication: CHRONIC LYMPHOCYTIC LEUKAEMIA
     Route: 048
     Dates: start: 20160901
  11. ATIVAN [Concomitant]
     Active Substance: LORAZEPAM

REACTIONS (6)
  - Platelet count decreased [Unknown]
  - White blood cell count decreased [Unknown]
  - Lung disorder [Unknown]
  - Subdural haematoma [Unknown]
  - Activated partial thromboplastin time prolonged [Unknown]
  - Lymphocyte count decreased [Unknown]

NARRATIVE: CASE EVENT DATE: 20171118
